FAERS Safety Report 7829091-2 (Version None)
Quarter: 2011Q4

REPORT INFORMATION
  Report Type: 
  Country: None (occurrence: None)
  Receive Date: 20111020
  Receipt Date: 20111007
  Transmission Date: 20120403
  Serious: Yes (Hospitalization)
  Sender: FDA-Public Use
  Company Number: US-BAYER-2011-082059

PATIENT
  Age: 26 Year
  Sex: Female
  Weight: 68 kg

DRUGS (3)
  1. FIORICET [Concomitant]
  2. ZYRTEC [Concomitant]
  3. YASMIN [Suspect]
     Indication: ORAL CONTRACEPTION
     Dosage: UNK
     Dates: start: 20090201, end: 20091101

REACTIONS (9)
  - CEREBROVASCULAR ACCIDENT [None]
  - DEEP VEIN THROMBOSIS [None]
  - HEMIPLEGIA [None]
  - CAROTID ARTERY DISSECTION [None]
  - NERVOUS SYSTEM DISORDER [None]
  - PAIN [None]
  - CEREBRAL THROMBOSIS [None]
  - EMOTIONAL DISORDER [None]
  - INJURY [None]
